FAERS Safety Report 5244962-1 (Version None)
Quarter: 2007Q1

REPORT INFORMATION
  Report Type: 
  Country: None (occurrence: None)
  Receive Date: 20070221
  Receipt Date: 20070221
  Transmission Date: 20070707
  Serious: Yes (Hospitalization)
  Sender: FDA-Public Use
  Company Number: None

PATIENT
  Sex: Male

DRUGS (1)
  1. GLEEVEC [Suspect]
     Indication: GASTROINTESTINAL CANCER METASTATIC
     Dosage: 600 MG ONCE DAILY PO
     Route: 048
     Dates: start: 20060915, end: 20061006

REACTIONS (8)
  - BRADYCARDIA [None]
  - GASTROINTESTINAL HAEMORRHAGE [None]
  - HAEMATEMESIS [None]
  - HAEMOGLOBIN DECREASED [None]
  - PROCEDURAL COMPLICATION [None]
  - PROCEDURAL HYPOTENSION [None]
  - RECTAL HAEMORRHAGE [None]
  - SYNCOPE [None]
